FAERS Safety Report 16989078 (Version 3)
Quarter: 2019Q4

REPORT INFORMATION
  Report Type: Spontaneous
  Country: US (occurrence: US)
  Receive Date: 20191104
  Receipt Date: 20191213
  Transmission Date: 20200122
  Serious: Yes (Death, Hospitalization)
  Sender: FDA-Public Use
  Company Number: US-PFIZER INC-2019476561

PATIENT
  Age: 99 Year
  Sex: Male

DRUGS (1)
  1. XALKORI [Suspect]
     Active Substance: CRIZOTINIB
     Dosage: UNK, CYCLIC

REACTIONS (2)
  - Death [Fatal]
  - Disorientation [Unknown]

NARRATIVE: CASE EVENT DATE: 20190817
